FAERS Safety Report 14092795 (Version 2)
Quarter: 2017Q4

REPORT INFORMATION
  Report Type: Spontaneous
  Country: US (occurrence: US)
  Receive Date: 20171016
  Receipt Date: 20171114
  Transmission Date: 20180321
  Serious: Yes (Hospitalization)
  Sender: FDA-Public Use
  Company Number: US-GLAXOSMITHKLINE-US2017GSK157174

PATIENT
  Sex: Male
  Weight: 71.2 kg

DRUGS (2)
  1. FLOLAN [Suspect]
     Active Substance: EPOPROSTENOL SODIUM
     Indication: PULMONARY ARTERIAL HYPERTENSION
     Dosage: 16 DF, CO
     Dates: start: 20020508
  2. FLOLAN [Suspect]
     Active Substance: EPOPROSTENOL SODIUM
     Indication: PULMONARY ARTERIAL HYPERTENSION
     Dosage: UNK
     Dates: start: 20161212

REACTIONS (5)
  - Catheter site infection [Unknown]
  - Catheter site injury [Unknown]
  - Complication associated with device [Unknown]
  - Neck injury [Unknown]
  - Skin wound [Unknown]
